FAERS Safety Report 8770657 (Version 2)
Quarter: 2012Q4

REPORT INFORMATION
  Report Type: Report from Study
  Country: DE (occurrence: DE)
  Receive Date: 20120907
  Receipt Date: 20120912
  Transmission Date: 20130627
  Serious: Yes (Other)
  Sender: FDA-Public Use
  Company Number: DE-ROCHE-1116795

PATIENT
  Age: 54 Year
  Sex: Female
  Weight: 48 kg

DRUGS (7)
  1. MABTHERA [Suspect]
     Indication: RHEUMATOID ARTHRITIS
     Route: 042
     Dates: start: 20110629, end: 20110629
  2. MABTHERA [Suspect]
     Route: 042
     Dates: start: 20110713, end: 20110713
  3. MABTHERA [Suspect]
     Route: 042
     Dates: start: 20111012, end: 20111012
  4. MABTHERA [Suspect]
     Route: 042
     Dates: start: 20111102, end: 20111102
  5. PREDNISOLON [Concomitant]
     Indication: RHEUMATOID ARTHRITIS
     Route: 065
  6. CALCIUM [Concomitant]
     Indication: RHEUMATOID ARTHRITIS
  7. VITAMIN D [Concomitant]

REACTIONS (1)
  - Alopecia [Not Recovered/Not Resolved]
